FAERS Safety Report 23900239 (Version 6)
Quarter: 2024Q4

REPORT INFORMATION
  Report Type: Spontaneous
  Country: US (occurrence: US)
  Receive Date: 20240526
  Receipt Date: 20241206
  Transmission Date: 20250115
  Serious: No
  Sender: BRISTOL-MYERS SQUIBB COMPANY
  Company Number: US-BRISTOL-MYERS SQUIBB COMPANY-2024-082180

PATIENT
  Age: 71 Year
  Sex: Male

DRUGS (6)
  1. POMALYST [Suspect]
     Active Substance: POMALIDOMIDE
     Indication: Plasma cell myeloma
     Route: 048
     Dates: start: 202207
  2. POMALYST [Suspect]
     Active Substance: POMALIDOMIDE
     Route: 048
     Dates: start: 202207
  3. POMALYST [Suspect]
     Active Substance: POMALIDOMIDE
     Route: 048
     Dates: start: 202207
  4. POMALYST [Suspect]
     Active Substance: POMALIDOMIDE
     Route: 048
     Dates: start: 202207
  5. POMALYST [Suspect]
     Active Substance: POMALIDOMIDE
     Dosage: FREQ: ONCE DAILY FOR 21 DAYS
     Route: 048
     Dates: start: 202207
  6. POMALYST [Suspect]
     Active Substance: POMALIDOMIDE
     Route: 048
     Dates: start: 202207

REACTIONS (12)
  - Hypoaesthesia [Unknown]
  - Ear discomfort [Unknown]
  - Facial pain [Unknown]
  - Chest discomfort [Unknown]
  - Swollen tongue [Unknown]
  - Rhinalgia [Unknown]
  - Brain fog [Unknown]
  - Oropharyngeal pain [Unknown]
  - Muscle spasms [Unknown]
  - Headache [Unknown]
  - Insomnia [Unknown]
  - Ocular discomfort [Unknown]
